FAERS Safety Report 18241767 (Version 1)
Quarter: 2020Q3

REPORT INFORMATION
  Report Type: Report from Study
  Country: None (occurrence: US)
  Receive Date: 20200908
  Receipt Date: 20200908
  Transmission Date: 20201103
  Serious: Yes (Other)
  Sender: FDA-Public Use
  Company Number: US-ABBVIE-20K-163-3416034-00

PATIENT
  Sex: Female

DRUGS (2)
  1. HUMIRA [Suspect]
     Active Substance: ADALIMUMAB
     Indication: PSORIATIC ARTHROPATHY
     Route: 058
     Dates: start: 20200512, end: 2020
  2. AMOXICILLIN. [Concomitant]
     Active Substance: AMOXICILLIN
     Indication: PRODUCT USED FOR UNKNOWN INDICATION

REACTIONS (10)
  - Gait disturbance [Unknown]
  - Salivary duct obstruction [Unknown]
  - Arthralgia [Recovered/Resolved]
  - Discomfort [Not Recovered/Not Resolved]
  - Cyst [Unknown]
  - Joint stiffness [Recovered/Resolved]
  - Pain [Not Recovered/Not Resolved]
  - Joint swelling [Recovered/Resolved]
  - Inflammatory marker increased [Recovered/Resolved]
  - Injection site bruising [Recovered/Resolved]

NARRATIVE: CASE EVENT DATE: 2020
